FAERS Safety Report 19877330 (Version 1)
Quarter: 2021Q3

REPORT INFORMATION
  Report Type: Spontaneous
  Country: US (occurrence: US)
  Receive Date: 20210924
  Receipt Date: 20210924
  Transmission Date: 20211014
  Serious: No
  Sender: FDA-Public Use
  Company Number: US-CELGENEUS-USA-20210903846

PATIENT
  Age: 55 Year
  Sex: Female

DRUGS (1)
  1. ZEPOSIA [Suspect]
     Active Substance: OZANIMOD HYDROCHLORIDE
     Indication: MULTIPLE SCLEROSIS
     Dosage: STARTER KIT
     Route: 048
     Dates: start: 20210801

REACTIONS (6)
  - Palpitations [Recovering/Resolving]
  - Dizziness [Recovered/Resolved]
  - Lymphopenia [Recovering/Resolving]
  - White blood cell count decreased [Recovering/Resolving]
  - Blood pressure decreased [Recovering/Resolving]
  - Oropharyngeal pain [Recovering/Resolving]

NARRATIVE: CASE EVENT DATE: 20210801
